FAERS Safety Report 21580466 (Version 1)
Quarter: 2022Q4

REPORT INFORMATION
  Report Type: Spontaneous
  Country: HR (occurrence: HR)
  Receive Date: 20221110
  Receipt Date: 20221110
  Transmission Date: 20230112
  Serious: Yes (Other)
  Sender: FDA-Public Use
  Company Number: HR-STRIDES ARCOLAB LIMITED-2022SP014976

PATIENT
  Age: 56 Year
  Sex: Female

DRUGS (5)
  1. OXYCODONE [Interacting]
     Active Substance: OXYCODONE
     Indication: Back pain
     Dosage: 10 MILLIGRAM, BID (SLOW-RELEASE)
     Route: 065
  2. ESCITALOPRAM [Interacting]
     Active Substance: ESCITALOPRAM OXALATE
     Indication: Depression
     Dosage: 10 MILLIGRAM (PER DAY)
     Route: 065
  3. ESCITALOPRAM [Interacting]
     Active Substance: ESCITALOPRAM OXALATE
     Dosage: 20 MILLIGRAM (PER DAY)
     Route: 065
  4. PYRIDOSTIGMINE [Concomitant]
     Active Substance: PYRIDOSTIGMINE
     Indication: Myasthenia gravis
     Dosage: 240 MILLIGRAM (PER DAY)
     Route: 065
  5. PREDNISONE [Concomitant]
     Active Substance: PREDNISONE
     Indication: Myasthenia gravis
     Dosage: 30 MILLIGRAM (PER DAY)
     Route: 065

REACTIONS (2)
  - Drug interaction [Unknown]
  - Oromandibular dystonia [Recovered/Resolved]
